FAERS Safety Report 9402804 (Version 1)
Quarter: 2013Q3

REPORT INFORMATION
  Report Type: Spontaneous
  Country: US (occurrence: US)
  Receive Date: 20130716
  Receipt Date: 20130716
  Transmission Date: 20140515
  Serious: No
  Sender: FDA-Public Use
  Company Number: US-PFIZER INC-2013207729

PATIENT
  Age: 34 Year
  Sex: Male
  Weight: 124.72 kg

DRUGS (1)
  1. LYRICA [Suspect]
     Indication: HERPES ZOSTER
     Dosage: 100 MG, 4X/DAY
     Route: 048
     Dates: end: 201305

REACTIONS (1)
  - Pain [Not Recovered/Not Resolved]
